FAERS Safety Report 15680858 (Version 2)
Quarter: 2019Q1

REPORT INFORMATION
  Report Type: Spontaneous
  Country: US (occurrence: US)
  Receive Date: 20181203
  Receipt Date: 20190314
  Transmission Date: 20190417
  Serious: No
  Sender: FDA-Public Use
  Company Number: US-PTC THERAPEUTICS, INC.-US-2018PTC001084

PATIENT
  Sex: Male

DRUGS (5)
  1. ATENOLOL. [Concomitant]
     Active Substance: ATENOLOL
     Indication: PRODUCT USED FOR UNKNOWN INDICATION
     Dosage: 25 MG, QD
  2. EMFLAZA [Suspect]
     Active Substance: DEFLAZACORT
     Dosage: 29.575 MG, QD
     Route: 048
     Dates: start: 20180511
  3. EMFLAZA [Suspect]
     Active Substance: DEFLAZACORT
     Dosage: 1.3 ML, QD
     Route: 048
     Dates: start: 20181201
  4. EMFLAZA [Suspect]
     Active Substance: DEFLAZACORT
     Indication: DUCHENNE MUSCULAR DYSTROPHY
     Dosage: UNK
     Route: 065
     Dates: start: 201802
  5. COZAAR [Concomitant]
     Active Substance: LOSARTAN POTASSIUM
     Indication: PRODUCT USED FOR UNKNOWN INDICATION
     Dosage: 12.5 MG, QD

REACTIONS (6)
  - Dry skin [Unknown]
  - Weight increased [Unknown]
  - Cushingoid [Unknown]
  - Increased appetite [Unknown]
  - Prescribed overdose [Unknown]
  - Swelling face [Unknown]

NARRATIVE: CASE EVENT DATE: 2018
